FAERS Safety Report 19017963 (Version 1)
Quarter: 2021Q1

REPORT INFORMATION
  Report Type: Spontaneous
  Country: CA (occurrence: CA)
  Receive Date: 20210316
  Receipt Date: 20210316
  Transmission Date: 20210420
  Serious: Yes (Other)
  Sender: FDA-Public Use
  Company Number: CA-TEVA-2021-CA-1889384

PATIENT
  Age: 68 Year
  Sex: Female

DRUGS (11)
  1. CANDESARTAN. [Suspect]
     Active Substance: CANDESARTAN
     Indication: CARDIAC FAILURE CHRONIC
     Dosage: 16 MILLIGRAM DAILY;
     Route: 048
  2. BISOPROLOL [Suspect]
     Active Substance: BISOPROLOL
     Dosage: 10 MILLIGRAM DAILY;
     Route: 065
  3. FUROSEMIDE. [Suspect]
     Active Substance: FUROSEMIDE
     Indication: CARDIAC FAILURE
     Dosage: 40 MILLIGRAM DAILY;
     Route: 065
  4. CANDESARTAN. [Suspect]
     Active Substance: CANDESARTAN
     Indication: CARDIAC FAILURE
     Dosage: 16 MILLIGRAM DAILY;
     Route: 048
  5. BISOPROLOL [Suspect]
     Active Substance: BISOPROLOL
     Indication: CARDIAC FAILURE
     Dosage: 5 MILLIGRAM DAILY;
     Route: 065
  6. BISOPROLOL [Suspect]
     Active Substance: BISOPROLOL
     Dosage: 10 MILLIGRAM DAILY;
     Route: 065
  7. PERINDOPRIL [Suspect]
     Active Substance: PERINDOPRIL
     Indication: CARDIAC FAILURE
     Dosage: 4 MILLIGRAM DAILY;
     Route: 065
  8. NITROGLYCERIN. [Suspect]
     Active Substance: NITROGLYCERIN
     Indication: CARDIAC FAILURE
     Dosage: .4 MILLIGRAM DAILY;
     Route: 065
  9. SPIRONOLACTONE. [Suspect]
     Active Substance: SPIRONOLACTONE
     Indication: PRODUCT USED FOR UNKNOWN INDICATION
     Dosage: 25 MILLIGRAM DAILY;
     Route: 065
  10. BISOPROLOL [Suspect]
     Active Substance: BISOPROLOL
     Indication: CARDIAC FAILURE CHRONIC
     Dosage: 5 MILLIGRAM DAILY;
     Route: 065
  11. FUROSEMIDE. [Suspect]
     Active Substance: FUROSEMIDE
     Indication: CARDIAC FAILURE CHRONIC
     Dosage: 40 MILLIGRAM DAILY;
     Route: 065

REACTIONS (4)
  - Cough [Recovered/Resolved]
  - Cardiac failure [Recovered/Resolved]
  - Dyspnoea [Recovered/Resolved]
  - Drug ineffective [Recovered/Resolved]
